FAERS Safety Report 13824780 (Version 2)
Quarter: 2017Q3

REPORT INFORMATION
  Report Type: Spontaneous
  Country: CA (occurrence: CA)
  Receive Date: 20170802
  Receipt Date: 20170818
  Transmission Date: 20171127
  Serious: Yes (Other)
  Sender: FDA-Public Use
  Company Number: CA-BAYER-2017-143067

PATIENT
  Age: 70 Year
  Sex: Male

DRUGS (1)
  1. RESTORALAX [Suspect]
     Active Substance: POLYETHYLENE GLYCOL 3350
     Dosage: UNK UNK, QD 6-7 MONTHS

REACTIONS (7)
  - Incorrect drug administration duration [None]
  - Oesophageal pain [None]
  - Product deposit [None]
  - Choking [None]
  - Foreign body in gastrointestinal tract [None]
  - Poor quality drug administered [None]
  - Dysphagia [Not Recovered/Not Resolved]

NARRATIVE: CASE EVENT DATE: 201706
